FAERS Safety Report 4591016-3 (Version None)
Quarter: 2005Q1

REPORT INFORMATION
  Report Type: 
  Country: None (occurrence: None)
  Receive Date: 20050222
  Receipt Date: 20050222
  Transmission Date: 20050727
  Serious: No
  Sender: FDA-Public Use
  Company Number: None

PATIENT
  Age: 68 Year
  Sex: Female
  Weight: 104.3273 kg

DRUGS (14)
  1. TEQUIN [Suspect]
     Indication: URINARY TRACT INFECTION
     Dosage: 400MG DAILY INTRAVENOUS
     Route: 042
     Dates: start: 20050216, end: 20050217
  2. ECOTRIN [Concomitant]
  3. GLYBURIDE [Concomitant]
  4. GLUCOPHAGE [Concomitant]
  5. LEVOXYL [Concomitant]
  6. PROPRANOLOL [Concomitant]
  7. PLAVIX [Concomitant]
  8. ZETIA [Concomitant]
  9. TYLENOL (CAPLET) [Concomitant]
  10. VALSARTAN [Concomitant]
  11. HYDRALAZINE [Concomitant]
  12. OXAPRZIN [Concomitant]
  13. PERCOCET [Concomitant]
  14. HUMULIN-R SLIDING SCALE [Concomitant]

REACTIONS (2)
  - BLOOD GLUCOSE DECREASED [None]
  - BLOOD GLUCOSE INCREASED [None]
